FAERS Safety Report 9605688 (Version 5)
Quarter: 2013Q4

REPORT INFORMATION
  Report Type: Spontaneous
  Country: US (occurrence: US)
  Receive Date: 20131008
  Receipt Date: 20131210
  Transmission Date: 20140711
  Serious: Yes (Other)
  Sender: FDA-Public Use
  Company Number: US-JNJFOC-20130917485

PATIENT
  Age: 71 Year
  Sex: Female
  Weight: 57.83 kg

DRUGS (12)
  1. XARELTO [Suspect]
     Indication: CEREBROVASCULAR ACCIDENT PROPHYLAXIS
     Dosage: EVENING
     Route: 048
     Dates: start: 20130418, end: 20131001
  2. XARELTO [Suspect]
     Indication: TRANSIENT ISCHAEMIC ATTACK
     Dosage: EVENING
     Route: 048
     Dates: start: 20130418, end: 20131001
  3. CRESTOR [Concomitant]
     Route: 065
  4. SECTRAL [Concomitant]
     Indication: ARRHYTHMIA
     Route: 065
     Dates: start: 1989
  5. LANOXIN [Concomitant]
     Indication: ARRHYTHMIA
     Route: 065
  6. MICARDIS HCT [Concomitant]
     Indication: HYPERTENSION
     Route: 065
  7. FISH OIL [Concomitant]
     Route: 065
  8. COQ10 [Concomitant]
     Route: 065
  9. MULTIVITAMINS [Concomitant]
     Route: 065
  10. BIOTIN [Concomitant]
     Route: 065
  11. VITAMIN D [Concomitant]
     Route: 065
  12. CALCIUM [Concomitant]
     Route: 065

REACTIONS (5)
  - Age-related macular degeneration [Not Recovered/Not Resolved]
  - Necrotising retinitis [Not Recovered/Not Resolved]
  - Rash pruritic [Recovering/Resolving]
  - Headache [Recovering/Resolving]
  - Alopecia [Recovering/Resolving]
